FAERS Safety Report 17009879 (Version 1)
Quarter: 2019Q4

REPORT INFORMATION
  Report Type: Report from Study
  Country: IT (occurrence: IT)
  Receive Date: 20191108
  Receipt Date: 20191108
  Transmission Date: 20200122
  Serious: Yes (Other)
  Sender: FDA-Public Use
  Company Number: IT-MYLANLABS-2019M1106137

PATIENT
  Age: 8 Year
  Sex: Female

DRUGS (2)
  1. VALERIANA DISPERT [Concomitant]
     Dosage: UNK
  2. RISPERIDONE. [Suspect]
     Active Substance: RISPERIDONE
     Indication: PSYCHOMOTOR HYPERACTIVITY
     Dosage: UNK
     Route: 048
     Dates: start: 20190325

REACTIONS (3)
  - Anxiety [Unknown]
  - Obsessive thoughts [Unknown]
  - Condition aggravated [Unknown]

NARRATIVE: CASE EVENT DATE: 20190326
